FAERS Safety Report 4952593-3 (Version None)
Quarter: 2006Q1

REPORT INFORMATION
  Report Type: 
  Country: None (occurrence: None)
  Receive Date: 20060317
  Receipt Date: 20060302
  Transmission Date: 20060701
  Serious: Yes (Other)
  Sender: FDA-Public Use
  Company Number: US-2006-004478

PATIENT
  Age: 83 Year
  Sex: Male

DRUGS (1)
  1. CAMPATH [Suspect]
     Indication: CHRONIC LYMPHOCYTIC LEUKAEMIA
     Dates: start: 20040224, end: 20040601

REACTIONS (2)
  - NEUROENDOCRINE CARCINOMA OF THE SKIN [None]
  - RECURRENT CANCER [None]
